FAERS Safety Report 10748110 (Version 2)
Quarter: 2015Q1

REPORT INFORMATION
  Report Type: Spontaneous
  Country: US (occurrence: US)
  Receive Date: 20150129
  Receipt Date: 20150327
  Transmission Date: 20150721
  Serious: No
  Sender: FDA-Public Use
  Company Number: US-009507513-1501USA011614

PATIENT
  Sex: Male
  Weight: 76 kg

DRUGS (2)
  1. INTRON A [Suspect]
     Active Substance: INTERFERON ALFA-2B
     Indication: HEPATITIS C
     Dosage: 20 M/ IU/ INJECT THREE TIMES A WEEK/ 20.000 U THREE TIMES WEEKLY
     Route: 058
     Dates: start: 201412
  2. INTRON A [Suspect]
     Active Substance: INTERFERON ALFA-2B
     Indication: MALIGNANT MELANOMA

REACTIONS (2)
  - Fatigue [Recovered/Resolved]
  - Influenza like illness [Recovered/Resolved]
